FAERS Safety Report 5382056-5 (Version None)
Quarter: 2007Q3

REPORT INFORMATION
  Report Type: 
  Country: None (occurrence: None)
  Receive Date: 20070709
  Receipt Date: 20070629
  Transmission Date: 20080115
  Serious: Yes (Other)
  Sender: FDA-Public Use
  Company Number: US-ASTRAZENECA-2007UW14080

PATIENT
  Age: 12021 Day
  Sex: Male

DRUGS (3)
  1. SEROQUEL [Suspect]
     Indication: BIPOLAR DISORDER
     Route: 048
     Dates: start: 20070218, end: 20070518
  2. TRAZODONE HCL [Concomitant]
  3. WELLBUTRIN [Concomitant]

REACTIONS (1)
  - EYE DISORDER [None]
